FAERS Safety Report 10176173 (Version 1)
Quarter: 2014Q2

REPORT INFORMATION
  Report Type: Spontaneous
  Country: US (occurrence: US)
  Receive Date: 20140516
  Receipt Date: 20140516
  Transmission Date: 20141212
  Serious: Yes (Other)
  Sender: FDA-Public Use
  Company Number: US-ASTRAZENECA-2014SE31370

PATIENT
  Age: 75 Year
  Sex: Female

DRUGS (15)
  1. PRILOSEC [Suspect]
     Indication: DYSPEPSIA
     Dates: end: 201403
  2. PRILOSEC [Suspect]
     Indication: DYSPEPSIA
     Dates: start: 201403, end: 201403
  3. HUMIRA [Suspect]
     Indication: PSORIATIC ARTHROPATHY
     Dates: start: 201402, end: 201402
  4. HUMIRA [Suspect]
     Indication: PSORIATIC ARTHROPATHY
     Dates: start: 2014, end: 2014
  5. HUMIRA [Suspect]
     Indication: PSORIATIC ARTHROPATHY
     Dates: start: 2014
  6. METHOTREXATE [Concomitant]
  7. ZYRTEC [Concomitant]
     Indication: MULTIPLE ALLERGIES
  8. FOLIC ACID [Concomitant]
  9. VITAMIN B12 [Concomitant]
     Route: 060
  10. VITAMIN D3 [Concomitant]
  11. PREDNISONE [Concomitant]
  12. PREDNISONE [Concomitant]
  13. PREDNISONE [Concomitant]
  14. PREDNISONE [Concomitant]
  15. PREDNISONE [Concomitant]

REACTIONS (13)
  - Uterine cancer [Unknown]
  - Ankle fracture [Unknown]
  - Oropharyngeal pain [Not Recovered/Not Resolved]
  - Increased upper airway secretion [Unknown]
  - Dyspepsia [Unknown]
  - Pain in extremity [Recovered/Resolved]
  - Peripheral swelling [Recovered/Resolved]
  - Hypersensitivity [Unknown]
  - Vomiting [Recovered/Resolved]
  - Abdominal pain upper [Recovered/Resolved]
  - Dry mouth [Unknown]
  - Dry throat [Unknown]
  - Drug ineffective [Unknown]
